FAERS Safety Report 12269853 (Version 1)
Quarter: 2016Q2

REPORT INFORMATION
  Report Type: Spontaneous
  Country: FR (occurrence: FR)
  Receive Date: 20160415
  Receipt Date: 20160415
  Transmission Date: 20160815
  Serious: Yes (Death, Life-Threatening, Other)
  Sender: FDA-Public Use
  Company Number: FR-ROXANE LABORATORIES, INC.-2016-RO-00651RO

PATIENT
  Age: 78 Year
  Sex: Female

DRUGS (2)
  1. PREDNISONE TABLETS USP, 5MG [Suspect]
     Active Substance: PREDNISONE
     Indication: AUTOIMMUNE HAEMOLYTIC ANAEMIA
     Route: 065
  2. CHLORAMBUCIL [Suspect]
     Active Substance: CHLORAMBUCIL
     Indication: CHRONIC LYMPHOCYTIC LEUKAEMIA
     Route: 065
     Dates: start: 200909

REACTIONS (5)
  - Hepatitis viral [Fatal]
  - Hepatic failure [Fatal]
  - Oesophagitis [Unknown]
  - Disseminated intravascular coagulation [Unknown]
  - Herpes virus infection [Unknown]
